FAERS Safety Report 6021306-9 (Version None)
Quarter: 2008Q4

REPORT INFORMATION
  Report Type: 
  Country: None (occurrence: None)
  Receive Date: 20081229
  Receipt Date: 20081215
  Transmission Date: 20090506
  Serious: Yes (Death)
  Sender: FDA-Public Use
  Company Number: US-PFIZER INC-2008155093

PATIENT

DRUGS (1)
  1. LYRICA [Suspect]

REACTIONS (1)
  - DEATH [None]
